FAERS Safety Report 25722009 (Version 1)
Quarter: 2025Q3

REPORT INFORMATION
  Report Type: Spontaneous
  Country: US (occurrence: US)
  Receive Date: 20250825
  Receipt Date: 20250825
  Transmission Date: 20251020
  Serious: No
  Sender: ROCHE
  Company Number: US-ROCHE-10000364553

PATIENT

DRUGS (4)
  1. XOLAIR [Suspect]
     Active Substance: OMALIZUMAB
     Indication: Systemic lupus erythematosus
     Dosage: STRENGTH:300 MG/2ML?STRENGTH:75 MG/0.5 ML
     Route: 058
  2. XOLAIR [Suspect]
     Active Substance: OMALIZUMAB
     Indication: Urticaria
  3. Benlysta Autoinj [Concomitant]
  4. XOLAIR PFS [Concomitant]
     Active Substance: OMALIZUMAB

REACTIONS (1)
  - Systemic lupus erythematosus [Unknown]
